FAERS Safety Report 11807981 (Version 6)
Quarter: 2016Q2

REPORT INFORMATION
  Report Type: Spontaneous
  Country: US (occurrence: US)
  Receive Date: 20151207
  Receipt Date: 20160505
  Transmission Date: 20160815
  Serious: No
  Sender: FDA-Public Use
  Company Number: US-PFIZER INC-2015406902

PATIENT
  Age: 73 Year
  Sex: Female
  Weight: 77.11 kg

DRUGS (9)
  1. NEURONTIN [Suspect]
     Active Substance: GABAPENTIN
     Indication: DYSAESTHESIA
     Dosage: UNK (1-4 CAPSULES), 3X/DAY
     Route: 048
     Dates: start: 20151020, end: 20151228
  2. SEROQUEL [Concomitant]
     Active Substance: QUETIAPINE FUMARATE
     Dosage: UNK
  3. BACLOFEN. [Concomitant]
     Active Substance: BACLOFEN
     Dosage: UNK
  4. LYRICA [Concomitant]
     Active Substance: PREGABALIN
     Indication: DYSAESTHESIA
     Dosage: 25 MG, UNK
     Dates: start: 20151211
  5. GABAPENTIN. [Suspect]
     Active Substance: GABAPENTIN
     Indication: DYSKINESIA
     Dosage: 300 MG, 3X/DAY
  6. GABAPENTIN. [Suspect]
     Active Substance: GABAPENTIN
     Dosage: 300 MG, 3X/DAY
     Dates: end: 201511
  7. GABAPENTIN. [Suspect]
     Active Substance: GABAPENTIN
     Indication: DYSAESTHESIA
     Dosage: 600 MG, 3X/DAY
  8. GABAPENTIN. [Suspect]
     Active Substance: GABAPENTIN
     Dosage: 1200 MG, UNK
  9. GABAPENTIN. [Suspect]
     Active Substance: GABAPENTIN
     Dosage: 900 MG, UNK

REACTIONS (7)
  - Ear discomfort [Not Recovered/Not Resolved]
  - Oropharyngeal pain [Unknown]
  - Laryngitis [Recovered/Resolved]
  - Dysphonia [Unknown]
  - Drug ineffective for unapproved indication [Not Recovered/Not Resolved]
  - Malaise [Recovered/Resolved]
  - Chills [Recovered/Resolved]

NARRATIVE: CASE EVENT DATE: 201511
